FAERS Safety Report 6484959-7 (Version None)
Quarter: 2009Q4

REPORT INFORMATION
  Report Type: 
  Country: None (occurrence: None)
  Receive Date: 20091203
  Receipt Date: 20091119
  Transmission Date: 20100525
  Serious: Yes (Hospitalization)
  Sender: FDA-Public Use
  Company Number: 2009AL007361

PATIENT
  Age: 69 Year
  Sex: Female

DRUGS (4)
  1. AMANTADINE HCL [Suspect]
     Indication: CEREBRAL INFARCTION
     Dosage: 100 MG; BID; PO
     Route: 048
  2. TICLOPIDINE HCL [Concomitant]
  3. HYDROCHLORIDE [Concomitant]
  4. VALSARTAN [Concomitant]

REACTIONS (10)
  - CONVULSION [None]
  - DECREASED APPETITE [None]
  - DEPRESSED LEVEL OF CONSCIOUSNESS [None]
  - DRUG TOXICITY [None]
  - DYSPHAGIA [None]
  - HAEMODIALYSIS [None]
  - HYDRONEPHROSIS [None]
  - HYPERKALAEMIA [None]
  - RENAL FAILURE ACUTE [None]
  - URINARY INCONTINENCE [None]
